FAERS Safety Report 11656351 (Version 1)
Quarter: 2015Q4

REPORT INFORMATION
  Report Type: Spontaneous
  Country: JP (occurrence: JP)
  Receive Date: 20151023
  Receipt Date: 20151023
  Transmission Date: 20160304
  Serious: Yes (Other)
  Sender: FDA-Public Use
  Company Number: JP-AKORN PHARMACEUTICALS-2015AKN00610

PATIENT
  Age: 47 Year
  Sex: Female

DRUGS (7)
  1. ZIOPTAN [Suspect]
     Active Substance: TAFLUPROST
     Dosage: UNK
     Dates: start: 20131009
  2. HYALEIN [Concomitant]
     Active Substance: HYALURONATE SODIUM
     Dosage: UNK
     Route: 047
     Dates: end: 20130722
  3. DUOTRAV [Concomitant]
     Active Substance: TIMOLOL MALEATE\TRAVOPROST
     Dosage: UNK
     Route: 047
     Dates: start: 20130617, end: 20130906
  4. ZIOPTAN [Suspect]
     Active Substance: TAFLUPROST
     Indication: OPEN ANGLE GLAUCOMA
     Dosage: 2 GTT, SINGLE, BOTH EYES
     Route: 047
     Dates: start: 20121017, end: 20130617
  5. DORZOLAMIDE HYDROCHLORIDE (+) TIMOLOL MALEATE [Concomitant]
     Active Substance: DORZOLAMIDE HYDROCHLORIDE\TIMOLOL MALEATE
     Dosage: UNK
     Route: 047
     Dates: start: 20131009, end: 20140122
  6. ALPHAGAN P [Concomitant]
     Active Substance: BRIMONIDINE TARTRATE
     Dosage: UNK
     Route: 047
     Dates: start: 20130906
  7. AZORGA [Concomitant]
     Active Substance: BRINZOLAMIDE\TIMOLOL MALEATE
     Dosage: UNK
     Route: 047
     Dates: start: 20140122

REACTIONS (4)
  - Glaucoma [Unknown]
  - Thyroid cancer [Recovered/Resolved]
  - Hypersensitivity [Recovering/Resolving]
  - Functional gastrointestinal disorder [Not Recovered/Not Resolved]

NARRATIVE: CASE EVENT DATE: 20130116
